FAERS Safety Report 8867173 (Version 1)
Quarter: 2012Q4

REPORT INFORMATION
  Report Type: 
  Country: US (occurrence: US)
  Receive Date: 20121025
  Receipt Date: 20121025
  Transmission Date: 20130627
  Serious: No
  Sender: FDA-Public Use
  Company Number: US-AMGEN-USASP2012015087

PATIENT
  Sex: Female

DRUGS (14)
  1. ENBREL [Suspect]
     Indication: PRODUCT USED FOR UNKNOWN INDICATION
     Dosage: 50 mg, qwk
     Route: 058
  2. LISINOPRIL [Concomitant]
     Dosage: 10 mg, UNK
  3. HUMULIN R [Concomitant]
     Dosage: 100 ml, UNK
  4. PREDNISONE [Concomitant]
     Dosage: 1 mg, UNK
  5. SYNTHROID [Concomitant]
     Dosage: 25 mug, UNK
  6. FLUOXETINE [Concomitant]
     Dosage: 20 mg, UNK
  7. BABY ASPIRIN [Concomitant]
     Dosage: 81 mg, UNK
  8. SIMVASTATIN [Concomitant]
     Dosage: 10 mg, UNK
  9. FLUTICASONE [Concomitant]
     Dosage: 50 mug, UNK
  10. AMOXICILLIN [Concomitant]
     Dosage: 500 mg, UNK
  11. FOLIC ACID [Concomitant]
     Dosage: 20 mg, UNK
  12. VITAMIN E                          /00110501/ [Concomitant]
     Dosage: 1000 IU, UNK
  13. FISH OIL [Concomitant]
  14. ZYRTEC [Concomitant]
     Dosage: 10 mg, UNK

REACTIONS (2)
  - Joint stiffness [Unknown]
  - Bronchitis [Unknown]
